FAERS Safety Report 5357436-4 (Version None)
Quarter: 2007Q2

REPORT INFORMATION
  Report Type: 
  Country: None (occurrence: None)
  Receive Date: 20070614
  Receipt Date: 20070606
  Transmission Date: 20071010
  Serious: Yes (Hospitalization)
  Sender: FDA-Public Use
  Company Number: HQWYE500106JUN07

PATIENT
  Age: 45 Year
  Sex: Female

DRUGS (7)
  1. AVLOCARDYL [Suspect]
     Dosage: 1200 MG ONCE [30 X 40 MG TABLETS]
     Route: 048
     Dates: start: 20070228, end: 20070228
  2. IMOVANE [Concomitant]
     Dosage: 1 DF DAILY
     Route: 048
  3. ETHANOL [Suspect]
     Dosage: UNSPECIFIED
     Route: 048
  4. SERESTA [Suspect]
     Route: 048
  5. EFFEXOR [Suspect]
     Route: 048
  6. MOTILIUM [Concomitant]
     Dosage: UNSPECIFIED
     Route: 048
  7. XANAX [Concomitant]
     Route: 048

REACTIONS (3)
  - COMA [None]
  - INTENTIONAL OVERDOSE [None]
  - SUICIDE ATTEMPT [None]
